FAERS Safety Report 9907275 (Version 3)
Quarter: 2014Q2

REPORT INFORMATION
  Report Type: Spontaneous
  Country: JP (occurrence: JP)
  Receive Date: 20140218
  Receipt Date: 20140401
  Transmission Date: 20141212
  Serious: Yes (Hospitalization)
  Sender: FDA-Public Use
  Company Number: JP-B.I. PHARMACEUTICALS,INC./RIDGEFIELD-2014-BI-07167NB

PATIENT
  Age: 71 Year
  Sex: Male

DRUGS (3)
  1. MICARDIS [Suspect]
     Indication: HYPERTENSION
     Dosage: 40 MG
     Route: 048
     Dates: start: 20080208, end: 20101217
  2. MICARDIS [Suspect]
     Dosage: 40 MG
     Route: 048
     Dates: start: 20131211
  3. JANUVIA / SITAGLIPTIN PHOSPHATE HYDRATE [Concomitant]
     Dosage: 50 MG
     Route: 048
     Dates: start: 20110217

REACTIONS (1)
  - Cholelithiasis [Recovered/Resolved]
